FAERS Safety Report 5400104-0 (Version None)
Quarter: 2007Q3

REPORT INFORMATION
  Report Type: 
  Country: None (occurrence: None)
  Receive Date: 20070726
  Receipt Date: 20070726
  Transmission Date: 20080115
  Serious: Yes (Hospitalization)
  Sender: FDA-Public Use
  Company Number: None

PATIENT
  Sex: Female
  Weight: 51 kg

DRUGS (10)
  1. TEMOZOLOMIDE [Suspect]
     Dosage: 1495 MG
  2. CILAZAPRIL [Concomitant]
  3. DILTIAZAM [Concomitant]
  4. EZETIMIBE [Concomitant]
  5. FAMOTIDINE [Concomitant]
  6. GLYBURIDE [Concomitant]
  7. METFORMIN HCL [Concomitant]
  8. DEXAMETHASONE 0.5MG TAB [Concomitant]
  9. HYDROCHLOROTHIAZIDE [Concomitant]
  10. NIFEDIPINE [Concomitant]

REACTIONS (3)
  - CARDIAC FAILURE CONGESTIVE [None]
  - MENINGITIS BACTERIAL [None]
  - UPPER RESPIRATORY TRACT INFECTION [None]
